FAERS Safety Report 11984708 (Version 1)
Quarter: 2016Q1

REPORT INFORMATION
  Report Type: Spontaneous
  Country: JP (occurrence: JP)
  Receive Date: 20160201
  Receipt Date: 20160201
  Transmission Date: 20160526
  Serious: Yes (Death)
  Sender: FDA-Public Use
  Company Number: JP-SHIONOGI, INC-2016000091

PATIENT
  Age: 90 Year

DRUGS (1)
  1. FINIBAX [Suspect]
     Active Substance: DORIPENEM MONOHYDRATE
     Indication: PNEUMONIA
     Dosage: UNK
     Route: 041
     Dates: start: 201511, end: 201511

REACTIONS (2)
  - Granulocyte count decreased [Recovering/Resolving]
  - Neoplasm malignant [Fatal]

NARRATIVE: CASE EVENT DATE: 201511
